FAERS Safety Report 6012359-2 (Version None)
Quarter: 2008Q4

REPORT INFORMATION
  Report Type: 
  Country: None (occurrence: None)
  Receive Date: 20081218
  Receipt Date: 20080904
  Transmission Date: 20090506
  Serious: No
  Sender: FDA-Public Use
  Company Number: US-ASTRAZENECA-2008UW18337

PATIENT
  Age: 60 Year
  Sex: Female

DRUGS (1)
  1. SYMBICORT [Suspect]
     Dosage: 160/4.5 UG
     Route: 055

REACTIONS (2)
  - CANDIDIASIS [None]
  - OROPHARYNGEAL BLISTERING [None]
